FAERS Safety Report 23404888 (Version 1)
Quarter: 2024Q1

REPORT INFORMATION
  Report Type: Report from Study
  Country: US (occurrence: US)
  Receive Date: 20240116
  Receipt Date: 20240116
  Transmission Date: 20240410
  Serious: Yes (Other)
  Sender: FDA-Public Use
  Company Number: US-SEATTLE GENETICS-2024SGN00256

PATIENT
  Age: 55 Year
  Sex: Female

DRUGS (1)
  1. TUCATINIB [Suspect]
     Active Substance: TUCATINIB
     Indication: Breast cancer female
     Route: 065

REACTIONS (15)
  - Renal impairment [Recovered/Resolved]
  - Eating disorder [Unknown]
  - Dehydration [Unknown]
  - Surgery [Unknown]
  - Dyspepsia [Unknown]
  - Gastrointestinal disorder [Unknown]
  - Abdominal distension [Unknown]
  - Gait disturbance [Unknown]
  - Muscle spasms [Unknown]
  - Eructation [Unknown]
  - Product physical issue [Unknown]
  - Adverse event [Unknown]
  - Blood sodium decreased [Unknown]
  - Weight decreased [Unknown]
  - Nausea [Unknown]

NARRATIVE: CASE EVENT DATE: 20230101
